FAERS Safety Report 23543569 (Version 1)
Quarter: 2024Q1

REPORT INFORMATION
  Report Type: Other
  Country: KZ (occurrence: KZ)
  Receive Date: 20240220
  Receipt Date: 20240220
  Transmission Date: 20240410
  Serious: Yes (Other)
  Sender: FDA-Public Use
  Company Number: KZ-MACLEODS PHARMA EU LTD-MAC2024045898

PATIENT
  Age: 61 Year
  Sex: Female

DRUGS (2)
  1. PYRAZINAMIDE [Suspect]
     Active Substance: PYRAZINAMIDE
     Indication: Product used for unknown indication
     Dosage: UNK,J04AK01
     Route: 065
  2. Levozin 250 [Concomitant]
     Indication: Product used for unknown indication
     Dosage: UNK, RK-LS-5 NO. 014991 LEVOZIN 250; NOBEL ALMATY PHARMACEUTICAL FACTORY
     Route: 065

REACTIONS (2)
  - Angioedema [Recovering/Resolving]
  - Urticaria [Recovering/Resolving]
